FAERS Safety Report 7767914-6 (Version None)
Quarter: 2011Q3

REPORT INFORMATION
  Report Type: 
  Country: None (occurrence: None)
  Receive Date: 20110922
  Receipt Date: 20110421
  Transmission Date: 20111222
  Serious: No
  Sender: FDA-Public Use
  Company Number: US-ASTRAZENECA-2011SE24063

PATIENT
  Age: 30 Year
  Sex: Female
  Weight: 68 kg

DRUGS (2)
  1. SEROQUEL XR [Suspect]
     Route: 048
     Dates: start: 20110201
  2. SEROQUEL XR [Suspect]
     Route: 048
     Dates: end: 20110401

REACTIONS (3)
  - DRY MOUTH [None]
  - MOOD ALTERED [None]
  - MUSCLE TWITCHING [None]
